FAERS Safety Report 5297369-5 (Version None)
Quarter: 2007Q3

REPORT INFORMATION
  Report Type: 
  Country: None (occurrence: None)
  Receive Date: 20070416
  Receipt Date: 20070403
  Transmission Date: 20080115
  Serious: Yes (Other)
  Sender: FDA-Public Use
  Company Number: PHBS2007KR06240

PATIENT

DRUGS (1)
  1. ZELMAC [Suspect]
     Route: 048

REACTIONS (2)
  - ABASIA [None]
  - MYOCARDIAL ISCHAEMIA [None]
